FAERS Safety Report 9516357 (Version 1)
Quarter: 2013Q1

REPORT INFORMATION
  Report Type: Spontaneous
  Country: US (occurrence: None)
  Receive Date: 20130305
  Receipt Date: 20130305
  Transmission Date: 20140127
  Serious: Yes (Death)
  Sender: FDA-Public Use
  Company Number: 163-21880-12113751

PATIENT
  Age: 93 Year
  Sex: Male

DRUGS (5)
  1. REVLIMID (LENALIDOMIDE) (CAPSULES) [Suspect]
     Indication: PLASMA CELL MYELOMA
     Dosage: 21 IN 21 D
     Route: 048
     Dates: start: 20080516
  2. LISINOPRIL [Concomitant]
  3. PREVACID [Concomitant]
  4. PERCOCET [Concomitant]
  5. DEXAMETHASONE [Concomitant]

REACTIONS (1)
  - Pneumonia [None]
